FAERS Safety Report 9375815 (Version 1)
Quarter: 2013Q2

REPORT INFORMATION
  Report Type: Other
  Country: DK (occurrence: DK)
  Receive Date: 20130628
  Receipt Date: 20130628
  Transmission Date: 20140414
  Serious: Yes (Other)
  Sender: FDA-Public Use
  Company Number: DK-WATSON-2013-11727

PATIENT
  Age: 66 Year
  Sex: Female

DRUGS (1)
  1. METFORMIN HYDROCHLORIDE (UNKNOWN) [Suspect]
     Indication: TYPE 2 DIABETES MELLITUS
     Dosage: 850 MG, UNKNOWN
     Route: 065
     Dates: start: 20130603

REACTIONS (3)
  - Obstructive airways disorder [Unknown]
  - Epigastric discomfort [Unknown]
  - Medication error [Unknown]
